FAERS Safety Report 5638955-X (Version None)
Quarter: 2008Q1

REPORT INFORMATION
  Report Type: 
  Country: None (occurrence: None)
  Receive Date: 20080222
  Receipt Date: 20080211
  Transmission Date: 20080703
  Serious: Yes (Death, Life-Threatening, Hospitalization)
  Sender: FDA-Public Use
  Company Number: 100#08#2008-00850

PATIENT
  Age: 63 Year
  Sex: Female

DRUGS (1)
  1. METHYLPREDNISOLONE [Suspect]
     Indication: COOMBS POSITIVE HAEMOLYTIC ANAEMIA
     Dosage: 1.5 MG/KG DAILY; 1 MG/KG DAILY

REACTIONS (3)
  - HISTIOCYTOSIS HAEMATOPHAGIC [None]
  - MULTI-ORGAN FAILURE [None]
  - VIRAL INFECTION [None]
